FAERS Safety Report 11630201 (Version 2)
Quarter: 2015Q4

REPORT INFORMATION
  Report Type: Spontaneous
  Country: CZ (occurrence: CZ)
  Receive Date: 20151014
  Receipt Date: 20151102
  Transmission Date: 20160304
  Serious: Yes (Death, Life-Threatening, Hospitalization, Other)
  Sender: FDA-Public Use
  Company Number: CZ-TEVA-599967ISR

PATIENT
  Age: 28 Year
  Sex: Female

DRUGS (7)
  1. LINEZOLID. [Suspect]
     Active Substance: LINEZOLID
     Indication: ERYSIPELAS
     Route: 065
  2. TIAGACYCLINE [Concomitant]
     Route: 065
  3. NOVALGIN [Concomitant]
     Active Substance: METAMIZOLE SODIUM
     Indication: PAIN
     Route: 065
  4. CLARITHROMYCIN. [Suspect]
     Active Substance: CLARITHROMYCIN
     Indication: ERYSIPELAS
     Route: 065
  5. TRAMAL [Concomitant]
     Active Substance: TRAMADOL
     Indication: PAIN
     Route: 065
  6. CARBAPENEM [Concomitant]
     Route: 065
  7. ACICLOVIR [Suspect]
     Active Substance: ACYCLOVIR
     Route: 065

REACTIONS (10)
  - Pupillary light reflex tests abnormal [Unknown]
  - Central nervous system lesion [Fatal]
  - Dyspnoea [Unknown]
  - Brain oedema [Fatal]
  - Contraindication to medical treatment [Not Recovered/Not Resolved]
  - Ventricular fibrillation [Unknown]
  - Hypotension [Unknown]
  - Muscle necrosis [Unknown]
  - Skin exfoliation [Unknown]
  - Unresponsive to stimuli [Unknown]
